FAERS Safety Report 16736048 (Version 1)
Quarter: 2019Q4

REPORT INFORMATION
  Report Type: Spontaneous
  Country: US (occurrence: US)
  Receive Date: 20190823
  Receipt Date: 20190823
  Transmission Date: 20200122
  Serious: Yes (Other)
  Sender: FDA-Public Use
  Company Number: None

PATIENT
  Age: 59 Year
  Sex: Female
  Weight: 54 kg

DRUGS (14)
  1. PREDNISONE. [Concomitant]
     Active Substance: PREDNISONE
  2. VALACYCLOVIR HCL [Concomitant]
     Active Substance: VALACYCLOVIR HYDROCHLORIDE
  3. KEPPRA [Concomitant]
     Active Substance: LEVETIRACETAM
  4. MONTELUKAST SODIUM. [Concomitant]
     Active Substance: MONTELUKAST SODIUM
  5. TYKERB [Suspect]
     Active Substance: LAPATINIB DITOSYLATE
     Indication: BREAST CANCER
     Route: 048
     Dates: start: 20190611
  6. AMOXICILLIN. [Concomitant]
     Active Substance: AMOXICILLIN
  7. DEXAMETHASONE. [Concomitant]
     Active Substance: DEXAMETHASONE
  8. FUROSEMIDE. [Concomitant]
     Active Substance: FUROSEMIDE
  9. EFFER-K [Concomitant]
  10. PROCHLORPERAZINE MALEATE. [Concomitant]
     Active Substance: PROCHLORPERAZINE MALEATE
  11. ATENOLOL. [Concomitant]
     Active Substance: ATENOLOL
  12. LORAZEPAM. [Concomitant]
     Active Substance: LORAZEPAM
  13. REMERON [Concomitant]
     Active Substance: MIRTAZAPINE
  14. NEUPOGEN [Concomitant]
     Active Substance: FILGRASTIM

REACTIONS (1)
  - Hospice care [None]
